FAERS Safety Report 9638301 (Version 5)
Quarter: 2014Q2

REPORT INFORMATION
  Report Type: Report from Study
  Country: US (occurrence: US)
  Receive Date: 20131022
  Receipt Date: 20140509
  Transmission Date: 20141212
  Serious: Yes (Hospitalization, Disabling)
  Sender: FDA-Public Use
  Company Number: US-ACTELION-A-NJ2013-89959

PATIENT
  Age: 44 Year
  Sex: Female

DRUGS (5)
  1. TRACLEER [Suspect]
     Indication: PULMONARY ARTERIAL HYPERTENSION
     Dosage: UNK
     Route: 048
  2. REMODULIN [Concomitant]
  3. ADCIRCA [Concomitant]
  4. COUMADIN [Concomitant]
  5. XARELTO [Concomitant]

REACTIONS (3)
  - Osteomyelitis [Recovering/Resolving]
  - Leg amputation [Recovering/Resolving]
  - Soft tissue infection [Recovering/Resolving]
